FAERS Safety Report 5453600-4 (Version None)
Quarter: 2007Q3

REPORT INFORMATION
  Report Type: 
  Country: None (occurrence: None)
  Receive Date: 20070917
  Receipt Date: 20070906
  Transmission Date: 20080115
  Serious: Yes (Other)
  Sender: FDA-Public Use
  Company Number: PHFR2007GB02652

PATIENT
  Sex: Female

DRUGS (1)
  1. EXELON [Suspect]
     Dosage: 3 MG, BID

REACTIONS (1)
  - ELECTROCARDIOGRAM QT PROLONGED [None]
